FAERS Safety Report 14194742 (Version 3)
Quarter: 2017Q4

REPORT INFORMATION
  Report Type: Spontaneous
  Country: SK (occurrence: SK)
  Receive Date: 20171116
  Receipt Date: 20171229
  Transmission Date: 20180321
  Serious: Yes (Other)
  Sender: FDA-Public Use
  Company Number: SK-AMGEN-SVKSP2017168891

PATIENT
  Age: 76 Year
  Sex: Male
  Weight: 73 kg

DRUGS (6)
  1. TEZEO HCT [Concomitant]
     Dosage: 80/12.5 MG, UNK
     Dates: start: 20140716
  2. AMLODIPIN [Concomitant]
     Active Substance: AMLODIPINE BESYLATE
     Dosage: 2 DF (5 MG), QD
     Dates: start: 20140716
  3. VASOCARDIN [Concomitant]
     Active Substance: METOPROLOL
     Dosage: 2 DF (50 MG), QD
     Dates: start: 20060110
  4. ANOPYRIN [Concomitant]
     Active Substance: ASPIRIN
     Dosage: 1 DF (100 MG), UNK
     Dates: start: 20070913
  5. MOXONIDIN [Concomitant]
     Active Substance: MOXONIDINE
     Dosage: 1-2 TABLETS (0.3 MG), QD
     Dates: start: 20170628
  6. REPATHA [Suspect]
     Active Substance: EVOLOCUMAB
     Indication: HYPERLIPIDAEMIA
     Dosage: 140 MG, Q2WK
     Route: 058
     Dates: start: 20170821

REACTIONS (6)
  - Rash generalised [Recovering/Resolving]
  - Nasal congestion [Recovering/Resolving]
  - Dyspnoea [Recovering/Resolving]
  - Mouth swelling [Recovering/Resolving]
  - Oropharyngeal swelling [Recovering/Resolving]
  - Pharyngeal oedema [Recovering/Resolving]

NARRATIVE: CASE EVENT DATE: 20171104
